FAERS Safety Report 6781078-7 (Version None)
Quarter: 2010Q2

REPORT INFORMATION
  Report Type: 
  Country: None (occurrence: None)
  Receive Date: 20100621
  Receipt Date: 20100617
  Transmission Date: 20101027
  Serious: Yes (Life-Threatening, Hospitalization, Other)
  Sender: FDA-Public Use
  Company Number: ZA-ASTRAZENECA-2010SE23025

PATIENT
  Age: 12 Year
  Sex: Male

DRUGS (12)
  1. SEROQUEL [Suspect]
     Indication: ABNORMAL BEHAVIOUR
     Route: 048
     Dates: start: 20100416, end: 20100417
  2. SEROQUEL [Suspect]
     Indication: MOOD SWINGS
     Route: 048
     Dates: start: 20100416, end: 20100417
  3. SEROQUEL [Suspect]
     Route: 048
     Dates: start: 20100418, end: 20100425
  4. SEROQUEL [Suspect]
     Route: 048
     Dates: start: 20100418, end: 20100425
  5. RISPERDAL [Concomitant]
     Indication: ABNORMAL BEHAVIOUR
     Dates: end: 20100416
  6. RISPERDAL [Concomitant]
     Dates: start: 20100517
  7. EPILIM [Concomitant]
     Indication: MOOD SWINGS
     Dosage: 300 MG IN THE MORNING AND 500 MG AT NIGHT
     Dates: end: 20100416
  8. EPILIM [Concomitant]
     Dates: start: 20100517
  9. CONCERTA [Concomitant]
  10. LUVOX [Concomitant]
     Dates: start: 20060101
  11. LUVOX [Concomitant]
     Dates: start: 20100501
  12. NULYTELY [Concomitant]
     Indication: CONSTIPATION

REACTIONS (7)
  - AGITATION [None]
  - ATHETOSIS [None]
  - CHOREA [None]
  - DEPRESSED MOOD [None]
  - OROPHARYNGEAL PAIN [None]
  - SUICIDAL BEHAVIOUR [None]
  - SUICIDE ATTEMPT [None]
